FAERS Safety Report 8136497-3 (Version None)
Quarter: 2012Q1

REPORT INFORMATION
  Report Type: 
  Country: None (occurrence: None)
  Receive Date: 20120214
  Receipt Date: 20120207
  Transmission Date: 20120608
  Serious: Yes (Death, Hospitalization, Other)
  Sender: FDA-Public Use
  Company Number: CA-ROCHE-1035790

PATIENT
  Sex: Female
  Weight: 50.848 kg

DRUGS (3)
  1. AVASTIN [Suspect]
     Indication: NEUROENDOCRINE CARCINOMA
     Route: 042
     Dates: end: 20120105
  2. CHEMOTHERAPY NOS [Concomitant]
  3. AFINITOR [Concomitant]

REACTIONS (8)
  - RENAL IMPAIRMENT [None]
  - DEATH [None]
  - GENERAL PHYSICAL HEALTH DETERIORATION [None]
  - DEHYDRATION [None]
  - ASCITES [None]
  - ABDOMINAL DISCOMFORT [None]
  - ELECTROLYTE IMBALANCE [None]
  - LABORATORY TEST ABNORMAL [None]
